FAERS Safety Report 5485888-8 (Version None)
Quarter: 2007Q4

REPORT INFORMATION
  Report Type: 
  Country: None (occurrence: None)
  Receive Date: 20071015
  Receipt Date: 20071011
  Transmission Date: 20080405
  Serious: Yes (Hospitalization)
  Sender: FDA-Public Use
  Company Number: JP-ROXANE LABORATORIES, INC-2007-BP-22592RO

PATIENT
  Age: 24 Year
  Sex: Female

DRUGS (4)
  1. ZONISAMIDE [Suspect]
     Indication: STATUS EPILEPTICUS
  2. LIDOCAINE [Suspect]
     Indication: STATUS EPILEPTICUS
  3. VALPROATE SODIUM [Suspect]
     Indication: STATUS EPILEPTICUS
  4. PHENYTOIN [Suspect]
     Indication: STATUS EPILEPTICUS

REACTIONS (1)
  - DRUG INEFFECTIVE [None]
